FAERS Safety Report 6867249-X (Version None)
Quarter: 2010Q3

REPORT INFORMATION
  Report Type: 
  Country: None (occurrence: None)
  Receive Date: 20100722
  Receipt Date: 20100717
  Transmission Date: 20110219
  Serious: Yes (Hospitalization)
  Sender: FDA-Public Use
  Company Number: US-B.I. PHARMACEUTICALS,INC./RIDGEFIELD-2010-BP-08157BP

PATIENT
  Sex: Male

DRUGS (15)
  1. SPIRIVA [Suspect]
     Indication: CHRONIC OBSTRUCTIVE PULMONARY DISEASE
     Dosage: 18 MCG
     Route: 055
     Dates: start: 20080101
  2. SPIRIVA [Suspect]
     Indication: BRONCHITIS
  3. ADVAIR DISKUS 100/50 [Suspect]
     Indication: CHRONIC OBSTRUCTIVE PULMONARY DISEASE
     Dates: start: 20100101
  4. TEKTURNA [Concomitant]
     Indication: HYPERTENSION
     Route: 048
  5. SIMVASTATIN [Concomitant]
     Indication: BLOOD CHOLESTEROL INCREASED
  6. TERAZOSIN HCL [Concomitant]
     Indication: HYPERTENSION
  7. KLOR-CON [Concomitant]
     Indication: CARDIAC DISORDER
  8. COZAAR [Concomitant]
     Indication: HYPERTENSION
  9. ALLOPURINOL [Concomitant]
     Indication: GASTROOESOPHAGEAL REFLUX DISEASE
     Dosage: 100 MG
  10. HYDROCHLOROT [Concomitant]
     Indication: HYPERTENSION
     Dosage: 12.5 MG
  11. HYDROCHLOROT [Concomitant]
     Indication: BLOOD URIC ACID INCREASED
  12. FUROSEMIDE [Concomitant]
     Indication: FLUID RETENTION
     Dosage: 40 MG
  13. OMEPRAZOLE [Concomitant]
     Indication: GASTROOESOPHAGEAL REFLUX DISEASE
  14. THEOPHYLLINE [Concomitant]
     Indication: CHRONIC OBSTRUCTIVE PULMONARY DISEASE
     Dosage: 400 MG
     Route: 048
  15. PRAVENTIC [Concomitant]
     Indication: CHRONIC OBSTRUCTIVE PULMONARY DISEASE

REACTIONS (7)
  - DIPLOPIA [None]
  - DRY MOUTH [None]
  - EYE PAIN [None]
  - HEART RATE INCREASED [None]
  - OCULAR HYPERAEMIA [None]
  - PNEUMONIA [None]
  - VISION BLURRED [None]
